FAERS Safety Report 8072014 (Version 2)
Quarter: 2013Q2

REPORT INFORMATION
  Report Type: Spontaneous
  Country: US (occurrence: US)
  Receive Date: 20110805
  Receipt Date: 20130415
  Transmission Date: 20140414
  Serious: Yes (Other)
  Sender: FDA-Public Use
  Company Number: US-ASTRAZENECA-2010SE30060

PATIENT
  Age: 64 Year
  Sex: Female

DRUGS (4)
  1. NEXIUM [Suspect]
     Route: 048
     Dates: start: 2004
  2. PRILOSEC [Suspect]
     Route: 048
  3. MYLANTA [Concomitant]
  4. BEXTRA [Concomitant]

REACTIONS (6)
  - Humerus fracture [Unknown]
  - Foot fracture [Unknown]
  - Diplopia [Unknown]
  - Dizziness [Unknown]
  - Vomiting [Unknown]
  - Drug ineffective [Unknown]
